FAERS Safety Report 7744727-2 (Version None)
Quarter: 2011Q3

REPORT INFORMATION
  Report Type: 
  Country: None (occurrence: None)
  Receive Date: 20110912
  Receipt Date: 20110906
  Transmission Date: 20111222
  Serious: Yes (Hospitalization, Other)
  Sender: FDA-Public Use
  Company Number: AU-AMGEN-AUSSP2011039430

PATIENT
  Age: 75 Year
  Sex: Female
  Weight: 50 kg

DRUGS (8)
  1. PROLIA [Suspect]
     Indication: OSTEOPOROSIS
     Dosage: 60 UNK, UNK
     Route: 058
     Dates: start: 20110222
  2. PANTOPRAZOLE [Concomitant]
     Indication: GASTROOESOPHAGEAL REFLUX DISEASE
     Dosage: 40 MG, QD
     Route: 048
  3. ASPIRIN [Concomitant]
     Indication: TEMPORAL ARTERITIS
  4. PREDNISONE TAB [Concomitant]
     Indication: TEMPORAL ARTERITIS
     Dosage: 30 MG, QD
     Route: 048
     Dates: start: 20090301
  5. METHOTREXATE [Concomitant]
  6. ASPIRIN [Concomitant]
     Indication: PERIPHERAL VASCULAR DISORDER
     Dosage: 100 MG, QD
     Route: 048
  7. IMMUNOSUPPRESSANTS [Concomitant]
     Indication: VASCULITIS
  8. STEROID ANTIBACTERIALS [Concomitant]

REACTIONS (2)
  - ESCHERICHIA SEPSIS [None]
  - IMMUNOSUPPRESSION [None]
